FAERS Safety Report 20227767 (Version 3)
Quarter: 2022Q2

REPORT INFORMATION
  Report Type: Spontaneous
  Country: CA (occurrence: CA)
  Receive Date: 20211224
  Receipt Date: 20220429
  Transmission Date: 20220721
  Serious: Yes (Hospitalization, Other)
  Sender: FDA-Public Use
  Company Number: CA-NAPPMUNDI-GBR-2021-0093522

PATIENT
  Age: 61 Year
  Sex: Male

DRUGS (25)
  1. MORPHINE SULFATE [Suspect]
     Active Substance: MORPHINE SULFATE
     Indication: Product used for unknown indication
     Dosage: UNK
     Route: 065
  2. MORPHINE SULFATE [Suspect]
     Active Substance: MORPHINE SULFATE
     Dosage: UNK
     Route: 065
  3. SANDOSTATIN [Suspect]
     Active Substance: OCTREOTIDE ACETATE
     Indication: Pancreatic neuroendocrine tumour metastatic
     Dosage: 30 MG, MONTHLY
     Route: 030
  4. SANDOSTATIN [Suspect]
     Active Substance: OCTREOTIDE ACETATE
     Indication: Carcinoid syndrome
     Dosage: UNKNOWN
     Route: 065
  5. LAMISIL [Suspect]
     Active Substance: TERBINAFINE HYDROCHLORIDE
     Indication: Product used for unknown indication
     Dosage: UNK
     Route: 065
  6. LAMISIL [Suspect]
     Active Substance: TERBINAFINE HYDROCHLORIDE
     Dosage: UNK
     Route: 065
  7. XELODA [Suspect]
     Active Substance: CAPECITABINE
     Indication: Product used for unknown indication
     Dosage: 800 MG, BID
     Route: 065
  8. XELODA [Suspect]
     Active Substance: CAPECITABINE
     Dosage: 1300 MG, BID
     Route: 048
  9. XELODA [Suspect]
     Active Substance: CAPECITABINE
     Dosage: 800 MG, BID
     Route: 065
  10. XELODA [Suspect]
     Active Substance: CAPECITABINE
     Dosage: UNK
     Route: 048
  11. POTASSIUM CHLORIDE [Concomitant]
     Active Substance: POTASSIUM CHLORIDE
     Indication: Product used for unknown indication
     Dosage: UNK
     Route: 065
  12. POTASSIUM CHLORIDE [Concomitant]
     Active Substance: POTASSIUM CHLORIDE
     Dosage: 15 ML, BID
     Route: 048
  13. POTASSIUM CHLORIDE [Concomitant]
     Active Substance: POTASSIUM CHLORIDE
     Dosage: UNK
     Route: 065
  14. POTASSIUM CHLORIDE [Concomitant]
     Active Substance: POTASSIUM CHLORIDE
     Dosage: 15 ML, BID
     Route: 048
  15. SPIRONOLACTONE [Concomitant]
     Active Substance: SPIRONOLACTONE
     Indication: Product used for unknown indication
     Dosage: UNK
     Route: 065
  16. SPIRONOLACTONE [Concomitant]
     Active Substance: SPIRONOLACTONE
     Dosage: UNK
     Route: 065
  17. TEMODAL [Concomitant]
     Active Substance: TEMOZOLOMIDE
     Indication: Product used for unknown indication
     Dosage: UNK
     Route: 065
  18. TEMODAL [Concomitant]
     Active Substance: TEMOZOLOMIDE
     Dosage: UNK
     Route: 065
  19. LASIX [Concomitant]
     Active Substance: FUROSEMIDE
     Indication: Product used for unknown indication
     Dosage: UNK
     Route: 065
  20. LASIX [Concomitant]
     Active Substance: FUROSEMIDE
     Dosage: UNK
     Route: 065
  21. XELODA [Concomitant]
     Active Substance: CAPECITABINE
     Dosage: UNK
     Route: 065
  22. XELODA [Concomitant]
     Active Substance: CAPECITABINE
     Dosage: 800 MILLIGRAM, BID
     Route: 048
  23. XELODA [Concomitant]
     Active Substance: CAPECITABINE
     Dosage: 1300 MG, BID
     Route: 048
  24. XELODA [Concomitant]
     Active Substance: CAPECITABINE
     Dosage: UNK
     Route: 048
  25. XELODA [Concomitant]
     Active Substance: CAPECITABINE
     Dosage: 800 MG, BID
     Route: 065

REACTIONS (42)
  - Cushing^s syndrome [Unknown]
  - Abdominal distension [Unknown]
  - Biliary obstruction [Unknown]
  - Blood pressure increased [Unknown]
  - Chest pain [Unknown]
  - Chills [Unknown]
  - Device occlusion [Unknown]
  - Diaphragmatic spasm [Unknown]
  - Discomfort [Unknown]
  - Dysphagia [Unknown]
  - Dyspnoea [Unknown]
  - Erythema [Unknown]
  - Eye swelling [Unknown]
  - Faecal volume decreased [Unknown]
  - Feeling cold [Unknown]
  - Gait disturbance [Unknown]
  - Hepatic lesion [Unknown]
  - Malignant neoplasm progression [Unknown]
  - Needle issue [Unknown]
  - Nephrolithiasis [Unknown]
  - Pain [Unknown]
  - Periorbital oedema [Unknown]
  - Peripheral swelling [Unknown]
  - Pyrexia [Unknown]
  - Rosacea [Unknown]
  - Skin warm [Unknown]
  - Swelling face [Unknown]
  - Swelling of eyelid [Unknown]
  - Weight decreased [Unknown]
  - Cartilage injury [Unknown]
  - Illness [Unknown]
  - Injection site mass [Unknown]
  - Joint injury [Unknown]
  - Pancreatic neuroendocrine tumour metastatic [Unknown]
  - Vomiting [Unknown]
  - Abdominal pain [Unknown]
  - Fatigue [Unknown]
  - Drug hypersensitivity [Unknown]
  - Malaise [Unknown]
  - Nausea [Unknown]
  - Rash [Unknown]
  - Visual impairment [Unknown]
